FAERS Safety Report 6420453-7 (Version None)
Quarter: 2009Q4

REPORT INFORMATION
  Report Type: 
  Country: None (occurrence: None)
  Receive Date: 20091029
  Receipt Date: 20091021
  Transmission Date: 20100525
  Serious: Yes (Hospitalization)
  Sender: FDA-Public Use
  Company Number: US-ASTRAZENECA-2009SE21569

PATIENT
  Sex: Female

DRUGS (3)
  1. SEROQUEL [Suspect]
     Route: 048
  2. ZYPREXA [Suspect]
     Route: 065
  3. RISPERIDONE [Concomitant]

REACTIONS (4)
  - DRUG INEFFECTIVE [None]
  - DYSARTHRIA [None]
  - JOINT STIFFNESS [None]
  - TONGUE DISORDER [None]
